FAERS Safety Report 7176824-7 (Version None)
Quarter: 2010Q4

REPORT INFORMATION
  Report Type: 
  Country: None (occurrence: None)
  Receive Date: 20101215
  Receipt Date: 20101215
  Transmission Date: 20110411
  Serious: No
  Sender: FDA-Public Use
  Company Number: None

PATIENT
  Age: 49 Year
  Sex: Male
  Weight: 102.0593 kg

DRUGS (1)
  1. VIAGRA [Suspect]
     Indication: ERECTILE DYSFUNCTION
     Dosage: HALF A PILL PERIODIC PO
     Route: 048
     Dates: start: 20100115, end: 20100115

REACTIONS (2)
  - DEAFNESS UNILATERAL [None]
  - TINNITUS [None]
